FAERS Safety Report 5095095-9 (Version None)
Quarter: 2006Q3

REPORT INFORMATION
  Report Type: 
  Country: None (occurrence: None)
  Receive Date: 20060830
  Receipt Date: 20060814
  Transmission Date: 20061208
  Serious: Yes (Death)
  Sender: FDA-Public Use
  Company Number: US200608004786

PATIENT
  Age: 65 Year
  Sex: Male

DRUGS (6)
  1. GEMZAR [Suspect]
     Indication: TRANSITIONAL CELL CARCINOMA
     Dosage: 1000 MG/M2, OTHER, INTRAVENOUS
     Route: 042
  2. CISPLATIN [Concomitant]
  3. PACILITAXEL (PLACILTAXEL) VIAL [Concomitant]
  4. DEXAMETHASONE TAB [Concomitant]
  5. CIMETIDINE [Concomitant]
  6. GRANISETRON (GRANISETRON) [Concomitant]

REACTIONS (1)
  - DRUG TOXICITY [None]
